FAERS Safety Report 21187500 (Version 1)
Quarter: 2022Q3

REPORT INFORMATION
  Report Type: Spontaneous
  Country: CA (occurrence: CA)
  Receive Date: 20220808
  Receipt Date: 20220808
  Transmission Date: 20221027
  Serious: Yes (Hospitalization)
  Sender: FDA-Public Use
  Company Number: CA-BoehringerIngelheim-2022-BI-185979

PATIENT
  Age: 97 Year
  Sex: Male

DRUGS (1)
  1. DABIGATRAN [Suspect]
     Active Substance: DABIGATRAN
     Indication: Product used for unknown indication

REACTIONS (5)
  - Asthenia [Unknown]
  - Fall [Unknown]
  - Haematoma [Unknown]
  - Melaena [Unknown]
  - Syncope [Unknown]
